FAERS Safety Report 20025266 (Version 1)
Quarter: 2021Q4

REPORT INFORMATION
  Report Type: Spontaneous
  Country: US (occurrence: None)
  Receive Date: 20211102
  Receipt Date: 20211102
  Transmission Date: 20220303
  Serious: Yes (Other)
  Sender: FDA-Public Use
  Company Number: 2021A789351

PATIENT
  Age: 50 Year
  Sex: Female

DRUGS (15)
  1. CRESTOR [Interacting]
     Active Substance: ROSUVASTATIN CALCIUM
     Dosage: UNKNOWN
     Route: 048
     Dates: end: 20211001
  2. SYMBICORT [Suspect]
     Active Substance: BUDESONIDE\FORMOTEROL FUMARATE DIHYDRATE
     Route: 055
  3. TERIFLUNOMIDE [Interacting]
     Active Substance: TERIFLUNOMIDE
     Indication: Multiple sclerosis
     Route: 048
  4. TERIFLUNOMIDE [Interacting]
     Active Substance: TERIFLUNOMIDE
     Indication: Multiple sclerosis
     Route: 048
     Dates: start: 20160705
  5. TERIFLUNOMIDE [Interacting]
     Active Substance: TERIFLUNOMIDE
     Indication: Multiple sclerosis
     Route: 048
     Dates: start: 201511
  6. TERIFLUNOMIDE [Interacting]
     Active Substance: TERIFLUNOMIDE
     Indication: Multiple sclerosis
     Route: 048
     Dates: end: 20211001
  7. ZETIA [Concomitant]
     Active Substance: EZETIMIBE
  8. ALPRAZOLAM [Concomitant]
     Active Substance: ALPRAZOLAM
  9. COMBIVENT [Concomitant]
     Active Substance: ALBUTEROL SULFATE\IPRATROPIUM BROMIDE
  10. XANAX [Concomitant]
     Active Substance: ALPRAZOLAM
  11. BELSOMRA [Concomitant]
     Active Substance: SUVOREXANT
  12. GABAPENTIN [Concomitant]
     Active Substance: GABAPENTIN
  13. AMBIEN [Concomitant]
     Active Substance: ZOLPIDEM TARTRATE
  14. FETZIMA [Concomitant]
     Active Substance: LEVOMILNACIPRAN HYDROCHLORIDE
  15. KLOR-CON [Concomitant]
     Active Substance: POTASSIUM CHLORIDE

REACTIONS (18)
  - Multiple sclerosis [Unknown]
  - Hepatic enzyme increased [Not Recovered/Not Resolved]
  - Fatigue [Unknown]
  - Somnolence [Unknown]
  - Thirst [Not Recovered/Not Resolved]
  - Insomnia [Unknown]
  - Depressed mood [Unknown]
  - Pain [Unknown]
  - Muscle spasticity [Unknown]
  - Feeling hot [Unknown]
  - Influenza like illness [Not Recovered/Not Resolved]
  - Myalgia [Unknown]
  - Flushing [Unknown]
  - Decreased appetite [Unknown]
  - Impaired driving ability [Unknown]
  - Pain in extremity [Unknown]
  - Drug interaction [Unknown]
  - Alopecia [Unknown]

NARRATIVE: CASE EVENT DATE: 20150101
